FAERS Safety Report 5256031-5 (Version None)
Quarter: 2007Q1

REPORT INFORMATION
  Report Type: 
  Country: None (occurrence: None)
  Receive Date: 20070301
  Receipt Date: 20070216
  Transmission Date: 20070707
  Serious: Yes (Other)
  Sender: FDA-Public Use
  Company Number: PAR_1376_2007

PATIENT
  Sex: Male

DRUGS (8)
  1. IBUPROFEN [Suspect]
     Dosage: DF
     Dates: start: 20020820
  2. NUPROFEN [Suspect]
     Dosage: DF
     Dates: start: 20020820
  3. COCAINE [Concomitant]
  4. METHYLENEDIOXYMETHAMPHETAMINE [Concomitant]
  5. CODEINE [Suspect]
     Dosage: DF
     Dates: start: 20020820
  6. PAROXETINE HCL [Suspect]
     Indication: PHOBIA
     Dosage: 50 MG QDAY
     Dates: start: 20020710
  7. PAROXETINE HCL [Suspect]
     Indication: PHOBIA
     Dosage: 20 MG QDAY
     Dates: start: 19990901, end: 20020710
  8. ALCOHOL [Suspect]
     Dosage: DF
     Dates: start: 20020820

REACTIONS (2)
  - MULTIPLE DRUG OVERDOSE INTENTIONAL [None]
  - SUICIDE ATTEMPT [None]
